FAERS Safety Report 18324077 (Version 1)
Quarter: 2020Q3

REPORT INFORMATION
  Report Type: Report from Study
  Country: DE (occurrence: DE)
  Receive Date: 20200929
  Receipt Date: 20200929
  Transmission Date: 20201103
  Serious: Yes (Hospitalization)
  Sender: FDA-Public Use
  Company Number: DE-BAUSCH-BL-2020-027311

PATIENT
  Age: 62 Year
  Sex: Female
  Weight: 59 kg

DRUGS (13)
  1. ISATUXIMAB [Suspect]
     Active Substance: ISATUXIMAB
     Route: 042
     Dates: start: 20200827, end: 20200827
  2. ALLOPURINOL. [Concomitant]
     Active Substance: ALLOPURINOL
     Indication: PRODUCT USED FOR UNKNOWN INDICATION
  3. NOVAMINSULFON [Concomitant]
     Active Substance: METAMIZOLE
     Indication: PRODUCT USED FOR UNKNOWN INDICATION
  4. DEXAMETHASONE. [Suspect]
     Active Substance: DEXAMETHASONE
     Indication: PLASMA CELL MYELOMA
     Route: 042
     Dates: start: 20190911, end: 20190911
  5. LENALIDOMIDE [Suspect]
     Active Substance: LENALIDOMIDE
     Indication: PLASMA CELL MYELOMA
     Route: 048
     Dates: start: 20190911, end: 20190911
  6. OXYCODON [Concomitant]
     Active Substance: OXYCODONE
     Indication: PRODUCT USED FOR UNKNOWN INDICATION
  7. DEXAMETHASONE. [Suspect]
     Active Substance: DEXAMETHASONE
     Route: 042
     Dates: start: 20200910, end: 20200910
  8. CARFILZOMIB [Suspect]
     Active Substance: CARFILZOMIB
     Dosage: DAYS 1,2,8,9,15,16
     Route: 042
     Dates: start: 20200828, end: 20200828
  9. ISATUXIMAB [Suspect]
     Active Substance: ISATUXIMAB
     Indication: PLASMA CELL MYELOMA
     Route: 042
     Dates: start: 20190911, end: 20190911
  10. CARFILZOMIB [Suspect]
     Active Substance: CARFILZOMIB
     Indication: PLASMA CELL MYELOMA
     Dosage: DAYS 1, 2
     Route: 042
     Dates: start: 20190911, end: 20190911
  11. LENALIDOMIDE [Suspect]
     Active Substance: LENALIDOMIDE
     Route: 048
     Dates: start: 20200903, end: 20200903
  12. CALCIMAGON D3 [Concomitant]
     Active Substance: CALCIUM\CHOLECALCIFEROL
     Indication: PRODUCT USED FOR UNKNOWN INDICATION
  13. ASPIRIN. [Concomitant]
     Active Substance: ASPIRIN
     Indication: PRODUCT USED FOR UNKNOWN INDICATION

REACTIONS (2)
  - Infection [Not Recovered/Not Resolved]
  - Acute kidney injury [Not Recovered/Not Resolved]

NARRATIVE: CASE EVENT DATE: 20200910
